FAERS Safety Report 5340703-8 (Version None)
Quarter: 2007Q2

REPORT INFORMATION
  Report Type: 
  Country: None (occurrence: None)
  Receive Date: 20070405
  Receipt Date: 20061204
  Transmission Date: 20071010
  Serious: No
  Sender: FDA-Public Use
  Company Number: US200612000543

PATIENT
  Age: 60 Year
  Sex: Female

DRUGS (5)
  1. CYMBALTA [Suspect]
     Indication: DEPRESSION
     Dosage: 20 MG
     Dates: start: 20061201
  2. REMERON [Concomitant]
  3. FOLATE SODIUM (FOLATE SODIUM) [Concomitant]
  4. VITAMIN B12 [Concomitant]
  5. FISH OIL (FISH OIL) [Concomitant]

REACTIONS (1)
  - HEART RATE INCREASED [None]
